FAERS Safety Report 4514114-9 (Version None)
Quarter: 2004Q4

REPORT INFORMATION
  Report Type: 
  Country: None (occurrence: None)
  Receive Date: 20041124
  Receipt Date: 20041116
  Transmission Date: 20050328
  Serious: Yes (Hospitalization, Other)
  Sender: FDA-Public Use
  Company Number: 2002-05-0260

PATIENT
  Age: 53 Year
  Sex: Female
  Weight: 45 kg

DRUGS (5)
  1. PEG-INTRON [Suspect]
     Indication: HEPATITIS C
     Dosage: 1.5 UG/KG SUBCUTANEOUS
     Route: 058
     Dates: start: 20010524, end: 20020418
  2. RIBAVIRIN [Suspect]
     Indication: HEPATITIS C
     Dosage: ORAL
     Route: 048
     Dates: start: 20010524, end: 20020124
  3. AMANTADINE [Suspect]
     Indication: HEPATITIS C
     Dosage: 200 MG
     Dates: start: 20010524, end: 20020418
  4. PROZAC [Concomitant]
  5. ATARAX [Concomitant]

REACTIONS (12)
  - ANAEMIA HAEMOLYTIC AUTOIMMUNE [None]
  - ARTHRALGIA [None]
  - ASTHENIA [None]
  - DYSPHAGIA [None]
  - INTERSTITIAL LUNG DISEASE [None]
  - LUNG DISORDER [None]
  - OEDEMA [None]
  - ORAL SOFT TISSUE DISORDER [None]
  - PULMONARY FIBROSIS [None]
  - RAYNAUD'S PHENOMENON [None]
  - SCLERODERMA [None]
  - WEIGHT DECREASED [None]
